FAERS Safety Report 4415483-0 (Version None)
Quarter: 2004Q2

REPORT INFORMATION
  Report Type: 
  Country: None (occurrence: None)
  Receive Date: 20040630
  Receipt Date: 20030619
  Transmission Date: 20050107
  Serious: Yes (Other)
  Sender: FDA-Public Use
  Company Number: A212700

PATIENT
  Sex: Male
  Weight: 54.4316 kg

DRUGS (2)
  1. ZOLOFT [Suspect]
     Indication: ANXIETY
     Dosage: 25 MG (DAILY) , ORAL
     Route: 048
     Dates: start: 19970101
  2. ONCERTA (METHYLPHENIDATE HYDROCHLORIDE) [Concomitant]

REACTIONS (1)
  - GYNAECOMASTIA [None]
